FAERS Safety Report 7336671-X (Version None)
Quarter: 2011Q1

REPORT INFORMATION
  Report Type: 
  Country: None (occurrence: None)
  Receive Date: 20110308
  Receipt Date: 20110301
  Transmission Date: 20110831
  Serious: Yes (Life-Threatening, Hospitalization, Other)
  Sender: FDA-Public Use
  Company Number: US-BIOGENIDEC-2010BI007110

PATIENT
  Age: 53 Year
  Sex: Male
  Weight: 85 kg

DRUGS (16)
  1. ABILIFY [Concomitant]
     Indication: DEPRESSION
     Dates: start: 20100106
  2. LIPITOR [Concomitant]
     Indication: HYPERCHOLESTEROLAEMIA
     Dates: start: 20061130
  3. LEVITRA [Concomitant]
     Indication: ERECTILE DYSFUNCTION
     Route: 048
     Dates: start: 20081017
  4. AMBIEN [Concomitant]
     Indication: INSOMNIA
     Route: 048
  5. CITALOPRAM [Concomitant]
     Indication: DEPRESSION
     Route: 048
  6. TYSABRI [Suspect]
     Indication: MULTIPLE SCLEROSIS
     Route: 042
     Dates: start: 20080305
  7. ATIVAN [Concomitant]
     Indication: ANXIETY
     Route: 048
  8. TOPAMAX [Concomitant]
     Indication: AFFECTIVE DISORDER
     Route: 048
     Dates: start: 20060413, end: 20081124
  9. EFFEXOR [Concomitant]
     Indication: DEPRESSION
     Dates: start: 20100101
  10. ANTIDEPRESSANTS [Concomitant]
     Indication: DEPRESSION
  11. ACETAZOLAMIDE [Concomitant]
     Indication: ASTHENIA
     Dates: start: 20061122, end: 20090209
  12. ACETAZOLAMIDE [Concomitant]
     Route: 048
  13. DIPHENHYDRAMINE [Concomitant]
     Route: 048
     Dates: start: 20100326, end: 20100326
  14. PRISTIQ [Concomitant]
     Indication: DEPRESSION
     Route: 048
     Dates: start: 20100106
  15. PAXIL [Concomitant]
     Indication: DEPRESSION
     Dates: start: 20100101
  16. REMERON [Concomitant]
     Indication: DEPRESSION
     Route: 048

REACTIONS (4)
  - MAJOR DEPRESSION [None]
  - SUICIDE ATTEMPT [None]
  - DEPRESSION SUICIDAL [None]
  - ACUTE RESPIRATORY FAILURE [None]
